FAERS Safety Report 8439130-6 (Version None)
Quarter: 2012Q2

REPORT INFORMATION
  Report Type: 
  Country: None (occurrence: None)
  Receive Date: 20120615
  Receipt Date: 20120606
  Transmission Date: 20120825
  Serious: Yes (Hospitalization)
  Sender: FDA-Public Use
  Company Number: US-BRISTOL-MYERS SQUIBB COMPANY-16665770

PATIENT
  Age: 79 Year
  Sex: Female
  Weight: 78 kg

DRUGS (1)
  1. GLUCOVANCE [Suspect]
     Indication: DIABETES MELLITUS
     Dosage: 1 DF:5/500MG 092-000-201
     Dates: start: 20020101

REACTIONS (4)
  - HYPERSENSITIVITY [None]
  - WHITE BLOOD CELL COUNT DECREASED [None]
  - FEELING ABNORMAL [None]
  - BLOOD GLUCOSE ABNORMAL [None]
